FAERS Safety Report 4289497-8 (Version None)
Quarter: 2004Q1

REPORT INFORMATION
  Report Type: 
  Country: None (occurrence: None)
  Receive Date: 20040113
  Receipt Date: 20030127
  Transmission Date: 20041129
  Serious: Yes (Hospitalization, Other)
  Sender: FDA-Public Use
  Company Number: 2003003677

PATIENT
  Age: 46 Year
  Sex: Female
  Weight: 81.6475 kg

DRUGS (4)
  1. DIFLUCAN [Suspect]
     Indication: VAGINAL MYCOSIS
     Dosage: (DAILY), ORAL
     Route: 048
     Dates: start: 20021201, end: 20030126
  2. ZIPRASIDONE HYDROCHLORIDE (ZIPRASIDONE HYDROCHLORIDE) [Concomitant]
  3. PHENYTOIN SODIUM [Concomitant]
  4. ATENOLOL [Concomitant]

REACTIONS (3)
  - PRURITUS [None]
  - STEVENS-JOHNSON SYNDROME [None]
  - SWELLING [None]
